FAERS Safety Report 18723535 (Version 1)
Quarter: 2021Q1

REPORT INFORMATION
  Report Type: Spontaneous
  Country: US (occurrence: US)
  Receive Date: 20210108
  Receipt Date: 20210108
  Transmission Date: 20210419
  Serious: No
  Sender: FDA-Public Use
  Company Number: None

PATIENT
  Age: 78 Year
  Sex: Female
  Weight: 70.65 kg

DRUGS (7)
  1. LISINOPRIL AND HYDROCHLOROTHIAZIDE [Concomitant]
     Active Substance: HYDROCHLOROTHIAZIDE\LISINOPRIL
  2. PROCHLORPERAZINE. [Concomitant]
     Active Substance: PROCHLORPERAZINE
  3. FENTANYL. [Concomitant]
     Active Substance: FENTANYL
  4. SENNA LAXATIVE [Concomitant]
     Active Substance: SENNOSIDES
  5. MEKTOVI [Suspect]
     Active Substance: BINIMETINIB
     Indication: SKIN CANCER
     Route: 048
     Dates: start: 20201214, end: 20210108
  6. HYDROCORTISONE. [Concomitant]
     Active Substance: HYDROCORTISONE
  7. BRAFTOVI [Suspect]
     Active Substance: ENCORAFENIB
     Indication: SKIN CANCER
     Route: 048
     Dates: start: 20201214, end: 20210108

REACTIONS (1)
  - Hospice care [None]

NARRATIVE: CASE EVENT DATE: 20210108
